FAERS Safety Report 11183902 (Version 4)
Quarter: 2015Q3

REPORT INFORMATION
  Report Type: Report from Study
  Country: US (occurrence: None)
  Receive Date: 20150610
  Receipt Date: 20150810
  Transmission Date: 20151125
  Serious: Yes (Hospitalization, Other)
  Sender: FDA-Public Use
  Company Number: US-002007

PATIENT
  Sex: Female

DRUGS (3)
  1. LISINOPRIL. [Concomitant]
     Active Substance: LISINOPRIL
  2. SOLUTIONS FOR PARENTERAL NUTRITION [Concomitant]
     Active Substance: AMINO ACIDS\DEXTROSE\ELECTROLYTES NOS
  3. GATTEX [Suspect]
     Active Substance: TEDUGLUTIDE\WATER
     Indication: SHORT-BOWEL SYNDROME
     Dosage: (DF SUBCUTANEOUS)
     Route: 058
     Dates: start: 20150512

REACTIONS (14)
  - Headache [None]
  - Pyrexia [None]
  - Vomiting [None]
  - Eye pain [None]
  - Pancreatitis [None]
  - Bacteraemia [None]
  - Acute kidney injury [None]
  - Abdominal pain [None]
  - Hypotension [None]
  - Drug dose omission [None]
  - Device related infection [None]
  - Stoma obstruction [None]
  - Nausea [None]
  - Sepsis [None]

NARRATIVE: CASE EVENT DATE: 2015
